FAERS Safety Report 20690496 (Version 1)
Quarter: 2022Q2

REPORT INFORMATION
  Report Type: Spontaneous
  Country: US (occurrence: None)
  Receive Date: 20220406
  Receipt Date: 20220406
  Transmission Date: 20220721
  Serious: Yes (Hospitalization)
  Sender: FDA-Public Use
  Company Number: None

PATIENT
  Age: 25 Year
  Sex: Male
  Weight: 108.2 kg

DRUGS (3)
  1. CYTARABINE [Suspect]
     Active Substance: CYTARABINE
     Dates: end: 20220317
  2. DASATINIB [Suspect]
     Active Substance: DASATINIB
     Dates: end: 20220323
  3. METHOTREXATE [Suspect]
     Active Substance: METHOTREXATE
     Dates: end: 20220315

REACTIONS (5)
  - Anaemia [None]
  - Pancytopenia [None]
  - Blood lactic acid increased [None]
  - Neutropenic sepsis [None]
  - Therapy interrupted [None]

NARRATIVE: CASE EVENT DATE: 20220324
